FAERS Safety Report 16148499 (Version 1)
Quarter: 2019Q2

REPORT INFORMATION
  Report Type: Spontaneous
  Country: NL (occurrence: FR)
  Receive Date: 20190402
  Receipt Date: 20190402
  Transmission Date: 20190711
  Serious: Yes (Life-Threatening, Hospitalization)
  Sender: FDA-Public Use
  Company Number: FR-FRESENIUS KABI-FK201903076

PATIENT
  Age: 19 Year
  Sex: Male
  Weight: 83 kg

DRUGS (2)
  1. PROPOFOL (MANUFACTURER UNKNOWN) [Suspect]
     Active Substance: PROPOFOL
     Indication: EPILEPSY
     Route: 042
     Dates: start: 20190108, end: 20190125
  2. THIOPENTAL SODIUM. [Suspect]
     Active Substance: THIOPENTAL SODIUM
     Indication: EPILEPSY
     Route: 041
     Dates: start: 20190111, end: 20190123

REACTIONS (3)
  - Cardiac failure [Recovering/Resolving]
  - Hepatocellular injury [Recovering/Resolving]
  - Hypertriglyceridaemia [Not Recovered/Not Resolved]

NARRATIVE: CASE EVENT DATE: 201901
